FAERS Safety Report 16446671 (Version 1)
Quarter: 2019Q2

REPORT INFORMATION
  Report Type: Report from Study
  Country: BE (occurrence: BE)
  Receive Date: 20190618
  Receipt Date: 20190618
  Transmission Date: 20190711
  Serious: Yes (Hospitalization)
  Sender: FDA-Public Use
  Company Number: PHHY2019BE116364

PATIENT
  Age: 47 Year
  Sex: Male

DRUGS (2)
  1. SANDOSTATIN LAR DEPOT [Suspect]
     Active Substance: OCTREOTIDE ACETATE
     Dosage: UNK UNK, QMO
     Route: 030
     Dates: start: 20190409
  2. SANDOSTATIN LAR DEPOT [Suspect]
     Active Substance: OCTREOTIDE ACETATE
     Indication: SHORT-BOWEL SYNDROME
     Dosage: 30 MG, QMO
     Route: 030
     Dates: start: 20181005

REACTIONS (4)
  - Condition aggravated [Unknown]
  - Stoma complication [Unknown]
  - Product use in unapproved indication [Unknown]
  - Short-bowel syndrome [Unknown]

NARRATIVE: CASE EVENT DATE: 20190507
